FAERS Safety Report 17524396 (Version 1)
Quarter: 2020Q1

REPORT INFORMATION
  Report Type: Spontaneous
  Country: FR (occurrence: FR)
  Receive Date: 20200311
  Receipt Date: 20200311
  Transmission Date: 20200409
  Serious: Yes (Death)
  Sender: FDA-Public Use
  Company Number: FR-SUN PHARMACEUTICAL INDUSTRIES LTD-2020RR-240096

PATIENT
  Age: 87 Year
  Sex: Male
  Weight: 72 kg

DRUGS (10)
  1. ESIDREX [Concomitant]
     Active Substance: HYDROCHLOROTHIAZIDE
     Dosage: ()
  2. BISOPROLOL [Suspect]
     Active Substance: BISOPROLOL
     Indication: MYOCARDIAL ISCHAEMIA
     Dosage: 5 MILLIGRAM, DAILY
     Route: 048
     Dates: end: 20200207
  3. LEPTICUR 10 MG, COMPRIME [Suspect]
     Active Substance: TROPATEPINE HYDROCHLORIDE
     Indication: WRONG PATIENT RECEIVED PRODUCT
     Dosage: 1 DOSAGE FORM, DAILY
     Route: 048
     Dates: start: 20200207, end: 20200208
  4. SOLIAN 400 MG, COMPRIME PELLICULE SECABLE [Suspect]
     Active Substance: AMISULPRIDE
     Indication: WRONG PATIENT RECEIVED PRODUCT
     Dosage: 3 DOSAGE FORM, DAILY
     Route: 048
     Dates: start: 20200207, end: 20200208
  5. VESICARE [Concomitant]
     Active Substance: SOLIFENACIN SUCCINATE
     Indication: PRODUCT USED FOR UNKNOWN INDICATION
     Dosage: UNK
     Route: 065
  6. LEPONEX 100 MG, COMPRIME SECABLE [Suspect]
     Active Substance: CLOZAPINE
     Indication: WRONG PATIENT RECEIVED PRODUCT
     Dosage: 2 DOSAGE FORM, DAILY
     Route: 048
     Dates: start: 20200207, end: 20200208
  7. PARACETAMOL [Suspect]
     Active Substance: ACETAMINOPHEN
     Indication: PAIN
     Dosage: UNK
     Route: 065
     Dates: end: 20200208
  8. LOXAPINE BASE [Suspect]
     Active Substance: LOXAPINE
     Indication: PRODUCT USED FOR UNKNOWN INDICATION
     Dosage: UNK
     Route: 048
     Dates: end: 20200208
  9. ELIQUIS [Concomitant]
     Active Substance: APIXABAN
     Indication: PRODUCT USED FOR UNKNOWN INDICATION
     Dosage: UNK
     Route: 065
  10. PERINDOPRIL [Concomitant]
     Active Substance: PERINDOPRIL
     Indication: PRODUCT USED FOR UNKNOWN INDICATION
     Dosage: UNK
     Route: 065

REACTIONS (4)
  - Pneumonia aspiration [Fatal]
  - Rhabdomyolysis [Fatal]
  - Coma [Fatal]
  - Wrong patient received product [Fatal]

NARRATIVE: CASE EVENT DATE: 20200207
